FAERS Safety Report 5796882-1 (Version None)
Quarter: 2008Q2

REPORT INFORMATION
  Report Type: 
  Country: None (occurrence: None)
  Receive Date: 20080618
  Receipt Date: 20070808
  Transmission Date: 20081010
  Serious: Yes (Other)
  Sender: FDA-Public Use
  Company Number: 200713352US

PATIENT
  Age: 60 Year
  Sex: Female
  Weight: 109.94 kg

DRUGS (15)
  1. LANTUS [Suspect]
     Indication: TYPE 2 DIABETES MELLITUS
     Dosage: 10 U QD
     Dates: start: 20060801
  2. LANTUS [Suspect]
     Indication: TYPE 2 DIABETES MELLITUS
     Dosage: 26 U
     Dates: end: 20070502
  3. LANTUS [Suspect]
     Indication: TYPE 2 DIABETES MELLITUS
     Dosage: 10 U
  4. OPTICLIK [Suspect]
     Indication: TYPE 2 DIABETES MELLITUS
  5. METFORMIN HYDROCHLORIDE [Concomitant]
  6. PIOGLITAZONE [Concomitant]
  7. GLUCOTROL [Concomitant]
  8. LISINOPRIL [Concomitant]
  9. ADENOSINE (TRICOR /00090101/) [Concomitant]
  10. LIPITOR [Concomitant]
  11. HYDROCHLOROTHIAZIDE [Concomitant]
  12. OMEPRAZOLE [Concomitant]
  13. METHYLCELLULOSE (CITRUCEL) [Concomitant]
  14. JUICE PLUS [Concomitant]
  15. ADENOSINE (TRICOR /00090101/) [Concomitant]

REACTIONS (2)
  - HYPOGLYCAEMIA [None]
  - INCORRECT DOSE ADMINISTERED [None]
